APPROVED DRUG PRODUCT: CITALOPRAM HYDROBROMIDE
Active Ingredient: CITALOPRAM HYDROBROMIDE
Strength: EQ 40MG BASE
Dosage Form/Route: TABLET;ORAL
Application: A077037 | Product #003
Applicant: PHARMOBEDIENT CONSULTING LLC
Approved: Nov 5, 2004 | RLD: No | RS: No | Type: DISCN